FAERS Safety Report 6905830-X (Version None)
Quarter: 2010Q3

REPORT INFORMATION
  Report Type: 
  Country: None (occurrence: None)
  Receive Date: 20100804
  Receipt Date: 20100728
  Transmission Date: 20110219
  Serious: Yes (Other)
  Sender: FDA-Public Use
  Company Number: CHPA2010US12222

PATIENT
  Age: 75 Year
  Sex: Female
  Weight: 72.562 kg

DRUGS (2)
  1. MAALOX ANTACID/ANTIGAS MS LIQ COOL MINT (NCH) [Suspect]
     Indication: DYSPEPSIA
     Dosage: UNK, UNK
     Route: 048
     Dates: end: 20100101
  2. MAALOX ANTACID/ANTIGAS MS LIQ COOL MINT (NCH) [Suspect]
     Indication: ABDOMINAL DISCOMFORT
     Dosage: UNK, UNK
     Route: 048
     Dates: start: 20100101

REACTIONS (3)
  - DIABETES MELLITUS [None]
  - INCORRECT DOSE ADMINISTERED [None]
  - WRONG TECHNIQUE IN DRUG USAGE PROCESS [None]
